FAERS Safety Report 23855045 (Version 1)
Quarter: 2024Q2

REPORT INFORMATION
  Report Type: Spontaneous
  Country: US (occurrence: US)
  Receive Date: 20240514
  Receipt Date: 20240514
  Transmission Date: 20240716
  Serious: No
  Sender: FDA-Public Use
  Company Number: US-SA-SAC20240506000997

PATIENT
  Age: 83 Year
  Sex: Female
  Weight: 74 kg

DRUGS (12)
  1. DUPIXENT [Suspect]
     Active Substance: DUPILUMAB
     Indication: Eosinophilic oesophagitis
     Dosage: 300 MG, QW
     Route: 058
  2. TYLENOL [Concomitant]
     Active Substance: ACETAMINOPHEN
  3. RANITIDINE HYDROCHLORIDE [Concomitant]
     Active Substance: RANITIDINE HYDROCHLORIDE
  4. ALEVE [Concomitant]
     Active Substance: NAPROXEN SODIUM
  5. FISH OIL [Concomitant]
     Active Substance: FISH OIL
  6. MINERALS\VITAMINS [Concomitant]
     Active Substance: MINERALS\VITAMINS
  7. ECOTRIN [Concomitant]
     Active Substance: ASPIRIN
  8. BAYER ASPIRIN [Concomitant]
     Active Substance: ASPIRIN
  9. SUPER MULTIPLE [Concomitant]
  10. CHILDRENS PAIN AND FEVER [Concomitant]
     Active Substance: ACETAMINOPHEN
  11. D1000 [Concomitant]
  12. CHONDROITIN;GLUCOSAMINE [Concomitant]

REACTIONS (3)
  - Throat clearing [Not Recovered/Not Resolved]
  - Cough [Not Recovered/Not Resolved]
  - Drug ineffective [Unknown]
